FAERS Safety Report 16477657 (Version 1)
Quarter: 2019Q2

REPORT INFORMATION
  Report Type: Spontaneous
  Country: CN (occurrence: CN)
  Receive Date: 20190626
  Receipt Date: 20190626
  Transmission Date: 20190711
  Serious: Yes (Other)
  Sender: FDA-Public Use
  Company Number: CN-BAXTER-2019BAX012426

PATIENT
  Age: 52 Year
  Sex: Male

DRUGS (5)
  1. 0.9% SODIUM CHLORIDE INJECTION [Suspect]
     Active Substance: SODIUM CHLORIDE
     Indication: FLUID REPLACEMENT
     Dosage: 5% GLUCOSE AND SODIUM CHLORIDE INJECTION + 10% POTASSIUM CHLORIDE INJECTION
     Route: 065
     Dates: start: 20190527
  2. 5% GLUCOSE  INJECTION [Suspect]
     Active Substance: DEXTROSE
     Indication: FLUID REPLACEMENT
     Dosage: 5% GLUCOSE AND SODIUM CHLORIDE INJECTION + 10% POTASSIUM CHLORIDE INJECTION
     Route: 065
     Dates: start: 20190527
  3. POTASSIUM CHLORIDE. [Suspect]
     Active Substance: POTASSIUM CHLORIDE
     Indication: FLUID REPLACEMENT
     Dosage: 5% GLUCOSE AND SODIUM CHLORIDE INJECTION + 10% POTASSIUM CHLORIDE INJECTION
     Route: 065
     Dates: start: 20190527
  4. COMPOUND SODIUM CHLORIDE INJECTION [Suspect]
     Active Substance: SODIUM CHLORIDE
     Indication: FLUID REPLACEMENT
     Route: 065
     Dates: start: 20190527
  5. MEDIUM AND LONG CHAIN FAT EMULSION INJECTION (C8-24) [Suspect]
     Active Substance: GLYCERIN\MEDIUM-CHAIN TRIGLYCERIDES\PHOSPHOLIPID\SOYBEAN OIL
     Indication: NUTRITIONAL SUPPLEMENTATION
     Route: 041
     Dates: start: 20190527, end: 20190527

REACTIONS (6)
  - Nausea [Recovered/Resolved]
  - Hyperhidrosis [Recovering/Resolving]
  - Abdominal discomfort [Unknown]
  - Blood glucose increased [Recovering/Resolving]
  - Dyspnoea [Unknown]
  - Vomiting [Recovering/Resolving]

NARRATIVE: CASE EVENT DATE: 20190527
